FAERS Safety Report 12489855 (Version 1)
Quarter: 2016Q2

REPORT INFORMATION
  Report Type: Spontaneous
  Country: ES (occurrence: ES)
  Receive Date: 20160622
  Receipt Date: 20160622
  Transmission Date: 20160815
  Serious: Yes (Other)
  Sender: FDA-Public Use
  Company Number: ES-JNJFOC-20160614788

PATIENT
  Age: 22 Year
  Sex: Female

DRUGS (1)
  1. TOPAMAX [Suspect]
     Active Substance: TOPIRAMATE
     Indication: MIGRAINE PROPHYLAXIS
     Route: 048
     Dates: start: 20160512, end: 20160516

REACTIONS (10)
  - Dizziness [Unknown]
  - Amnesia [Unknown]
  - Coordination abnormal [Unknown]
  - Diarrhoea [Unknown]
  - Malaise [Unknown]
  - Depressed level of consciousness [Unknown]
  - Somnolence [Unknown]
  - Speech disorder [Unknown]
  - Nausea [Unknown]
  - Hypokinesia [Unknown]

NARRATIVE: CASE EVENT DATE: 20160513
